FAERS Safety Report 18701605 (Version 2)
Quarter: 2021Q3

REPORT INFORMATION
  Report Type: Spontaneous
  Country: US (occurrence: US)
  Receive Date: 20210105
  Receipt Date: 20210826
  Transmission Date: 20211014
  Serious: Yes (Other)
  Sender: FDA-Public Use
  Company Number: US-ASTRAZENECA-2020SF75881

PATIENT
  Age: 24863 Day
  Sex: Female

DRUGS (93)
  1. PRILOSEC [Suspect]
     Active Substance: OMEPRAZOLE MAGNESIUM
     Indication: GASTROOESOPHAGEAL REFLUX DISEASE
     Route: 048
     Dates: start: 198910, end: 202010
  2. LISINOPRIL. [Concomitant]
     Active Substance: LISINOPRIL
     Indication: HYPERTENSION
  3. RANITIDINE. [Concomitant]
     Active Substance: RANITIDINE
  4. COENZYME Q10 [Concomitant]
     Active Substance: DIETARY SUPPLEMENT\UBIDECARENONE
  5. DICYCLOMINE [Concomitant]
     Active Substance: DICYCLOMINE HYDROCHLORIDE
  6. CODEINE [Concomitant]
     Active Substance: CODEINE
  7. ZOSTER [Concomitant]
  8. ZIAC [Concomitant]
     Active Substance: BISOPROLOL FUMARATE\HYDROCHLOROTHIAZIDE
  9. BENADRYL [Concomitant]
     Active Substance: DIPHENHYDRAMINE HYDROCHLORIDE
  10. NITROFURANTOIN. [Concomitant]
     Active Substance: NITROFURANTOIN
  11. KENALOG [Concomitant]
     Active Substance: TRIAMCINOLONE ACETONIDE
  12. SODIUM CHLORIDE. [Concomitant]
     Active Substance: SODIUM CHLORIDE
  13. BACITRACIN. [Concomitant]
     Active Substance: BACITRACIN
  14. LACTULOSE. [Concomitant]
     Active Substance: LACTULOSE
  15. PRILOSEC [Suspect]
     Active Substance: OMEPRAZOLE MAGNESIUM
     Indication: GASTROOESOPHAGEAL REFLUX DISEASE
     Route: 048
     Dates: start: 198910, end: 202010
  16. PRILOSEC [Suspect]
     Active Substance: OMEPRAZOLE MAGNESIUM
     Indication: GASTROOESOPHAGEAL REFLUX DISEASE
     Dosage: GENERIC40.0MG UNKNOWN
     Route: 065
     Dates: start: 2003
  17. PREVACID [Suspect]
     Active Substance: LANSOPRAZOLE
     Indication: GASTROOESOPHAGEAL REFLUX DISEASE
     Dosage: 30.0MG UNKNOWN
     Route: 065
     Dates: start: 1995, end: 2020
  18. PROTONIX [Suspect]
     Active Substance: PANTOPRAZOLE SODIUM
     Indication: GASTROOESOPHAGEAL REFLUX DISEASE
     Route: 065
     Dates: start: 2000, end: 2020
  19. AMOXICILLIN. [Concomitant]
     Active Substance: AMOXICILLIN
     Indication: INFECTION
  20. PRAVATSTATIN [Concomitant]
     Indication: HYPERLIPIDAEMIA
  21. OXYBUTYNIN. [Concomitant]
     Active Substance: OXYBUTYNIN CHLORIDE
  22. ASPIRIN. [Concomitant]
     Active Substance: ASPIRIN
  23. TOPIRAMATE. [Concomitant]
     Active Substance: TOPIRAMATE
  24. FLEXERIL [Concomitant]
     Active Substance: CYCLOBENZAPRINE HYDROCHLORIDE
  25. TURMERIC [Concomitant]
     Active Substance: HERBALS\TURMERIC
  26. VITAMIN B12 [Concomitant]
     Active Substance: CYANOCOBALAMIN
  27. FOSAMAX [Concomitant]
     Active Substance: ALENDRONATE SODIUM
  28. ALLEGRA [Concomitant]
     Active Substance: FEXOFENADINE HYDROCHLORIDE
  29. NEXIUM [Suspect]
     Active Substance: ESOMEPRAZOLE MAGNESIUM
     Indication: GASTROOESOPHAGEAL REFLUX DISEASE
     Route: 048
     Dates: start: 198910, end: 202010
  30. PRILOSEC [Suspect]
     Active Substance: OMEPRAZOLE MAGNESIUM
     Indication: GASTROOESOPHAGEAL REFLUX DISEASE
     Dosage: GENERIC40.0MG UNKNOWN
     Route: 065
     Dates: start: 2003
  31. PREVACID [Suspect]
     Active Substance: LANSOPRAZOLE
     Indication: GASTROOESOPHAGEAL REFLUX DISEASE
     Route: 065
     Dates: start: 198910, end: 202010
  32. TRAMADOL. [Concomitant]
     Active Substance: TRAMADOL
     Indication: PAIN
  33. ONDANSETRON [Concomitant]
     Active Substance: ONDANSETRON
  34. ASCORBIC ACID. [Concomitant]
     Active Substance: ASCORBIC ACID
  35. AZITHROMYCIN ANHYDROUS. [Concomitant]
     Active Substance: AZITHROMYCIN ANHYDROUS
  36. FERROUS SULFATE. [Concomitant]
     Active Substance: FERROUS SULFATE
  37. SUCRALFATE. [Concomitant]
     Active Substance: SUCRALFATE
  38. ALBUTEROL. [Concomitant]
     Active Substance: ALBUTEROL
  39. TESSALON [Concomitant]
     Active Substance: BENZONATATE
  40. ESTRADIOL. [Concomitant]
     Active Substance: ESTRADIOL
  41. SYSTANCE [Concomitant]
  42. PROPYLENE GLYCOL [Concomitant]
     Active Substance: PROPYLENE GLYCOL
  43. EPINEPHRINE. [Concomitant]
     Active Substance: EPINEPHRINE
  44. BOTOX [Concomitant]
     Active Substance: ONABOTULINUMTOXINA
  45. FENTANYL. [Concomitant]
     Active Substance: FENTANYL
  46. LIDOCAINE. [Concomitant]
     Active Substance: LIDOCAINE
  47. PROMETHAZINE [Concomitant]
     Active Substance: PROMETHAZINE HYDROCHLORIDE
  48. ERYTHROMYCIN. [Concomitant]
     Active Substance: ERYTHROMYCIN
  49. NEXIUM [Suspect]
     Active Substance: ESOMEPRAZOLE MAGNESIUM
     Indication: GASTROOESOPHAGEAL REFLUX DISEASE
     Route: 048
     Dates: start: 2001, end: 2020
  50. CEFPROZIL. [Concomitant]
     Active Substance: CEFPROZIL
     Indication: INFECTION
  51. DOCUSATE SODIUM. [Concomitant]
     Active Substance: DOCUSATE SODIUM
  52. FLUTICASONE. [Concomitant]
     Active Substance: FLUTICASONE
  53. VITAMIN D [Concomitant]
     Active Substance: VITAMIN D NOS
  54. TRULANCE [Concomitant]
     Active Substance: PLECANATIDE
  55. LACTATED RINGERS SOLUTION [Concomitant]
     Active Substance: CALCIUM CHLORIDE\POTASSIUM CHLORIDE\SODIUM CHLORIDE\SODIUM LACTATE
  56. PROTONIX [Suspect]
     Active Substance: PANTOPRAZOLE SODIUM
     Indication: GASTROOESOPHAGEAL REFLUX DISEASE
     Route: 065
     Dates: start: 198910, end: 202010
  57. PROTONIX [Suspect]
     Active Substance: PANTOPRAZOLE SODIUM
     Indication: GASTROOESOPHAGEAL REFLUX DISEASE
     Route: 065
     Dates: start: 198910, end: 202010
  58. PROTONIX [Suspect]
     Active Substance: PANTOPRAZOLE SODIUM
     Indication: GASTROOESOPHAGEAL REFLUX DISEASE
     Dosage: GENERIC40.0MG UNKNOWN
     Route: 065
     Dates: start: 2011
  59. BUMETANIDE. [Concomitant]
     Active Substance: BUMETANIDE
     Indication: OEDEMA
  60. VIOXX [Concomitant]
     Active Substance: ROFECOXIB
     Indication: INFLAMMATION
  61. METFORMIN [Concomitant]
     Active Substance: METFORMIN HYDROCHLORIDE
  62. 3?ARGENTOTHIO?2?HYDROXY?1?PROPANESULFATE NA/ACETARSOL SODIUM [Concomitant]
  63. AMITRIPTYLINE [Concomitant]
     Active Substance: AMITRIPTYLINE
  64. NEXIUM [Suspect]
     Active Substance: ESOMEPRAZOLE MAGNESIUM
     Indication: GASTROOESOPHAGEAL REFLUX DISEASE
     Route: 048
     Dates: start: 2001, end: 2020
  65. PREVACID [Suspect]
     Active Substance: LANSOPRAZOLE
     Indication: GASTROOESOPHAGEAL REFLUX DISEASE
     Route: 065
     Dates: start: 198910, end: 202010
  66. PROTONIX [Suspect]
     Active Substance: PANTOPRAZOLE SODIUM
     Indication: GASTROOESOPHAGEAL REFLUX DISEASE
     Route: 065
     Dates: start: 2000, end: 2020
  67. HYDROCODONE/PARACETAMOL [Concomitant]
     Active Substance: ACETAMINOPHEN\HYDROCODONE BITARTRATE
  68. ALPRAZOLAM. [Concomitant]
     Active Substance: ALPRAZOLAM
  69. ZETIA [Concomitant]
     Active Substance: EZETIMIBE
  70. CRESTOR [Concomitant]
     Active Substance: ROSUVASTATIN CALCIUM
  71. METHYLPREDNISOLONE. [Concomitant]
     Active Substance: METHYLPREDNISOLONE
  72. TORADOL [Concomitant]
     Active Substance: KETOROLAC TROMETHAMINE
  73. FLUOXETINE [Concomitant]
     Active Substance: FLUOXETINE HYDROCHLORIDE
  74. ATROPINE. [Concomitant]
     Active Substance: ATROPINE
  75. GLYCEROL/DISODIUM METHANEARSONATE/2,4,6?TRIBROMO?M?CRESOL/STRYCHNOS NUX?VOMICA/CAFFEINE/SODIUM PHOSP [Concomitant]
  76. PRILOSEC [Suspect]
     Active Substance: OMEPRAZOLE MAGNESIUM
     Indication: GASTROOESOPHAGEAL REFLUX DISEASE
     Route: 048
     Dates: start: 1989, end: 2020
  77. PRILOSEC [Suspect]
     Active Substance: OMEPRAZOLE MAGNESIUM
     Indication: GASTROOESOPHAGEAL REFLUX DISEASE
     Route: 048
     Dates: start: 1989, end: 2020
  78. PROTONIX [Suspect]
     Active Substance: PANTOPRAZOLE SODIUM
     Indication: GASTROOESOPHAGEAL REFLUX DISEASE
     Dosage: GENERIC40.0MG UNKNOWN
     Route: 065
     Dates: start: 2011
  79. GUAIFENESIN. [Concomitant]
     Active Substance: GUAIFENESIN
  80. TIZANIDINE. [Concomitant]
     Active Substance: TIZANIDINE
  81. FLUMAZENIL. [Concomitant]
     Active Substance: FLUMAZENIL
  82. NEXIUM [Suspect]
     Active Substance: ESOMEPRAZOLE MAGNESIUM
     Indication: GASTROOESOPHAGEAL REFLUX DISEASE
     Route: 048
     Dates: start: 198910, end: 202010
  83. PREVACID [Suspect]
     Active Substance: LANSOPRAZOLE
     Indication: GASTROOESOPHAGEAL REFLUX DISEASE
     Dosage: 30.0MG UNKNOWN
     Route: 065
     Dates: start: 1995, end: 2020
  84. CIPROFLOXACIN. [Concomitant]
     Active Substance: CIPROFLOXACIN
     Indication: INFECTION
  85. MELOXICAM. [Concomitant]
     Active Substance: MELOXICAM
     Indication: INFLAMMATION
  86. LIPITOR [Concomitant]
     Active Substance: ATORVASTATIN CALCIUM
     Indication: HYPERLIPIDAEMIA
  87. ESCIN\LEVOTHYROXINE [Concomitant]
     Active Substance: ESCIN\LEVOTHYROXINE
  88. PROPRANOLOL [Concomitant]
     Active Substance: PROPRANOLOL HYDROCHLORIDE
  89. ZYRTEC [Concomitant]
     Active Substance: CETIRIZINE HYDROCHLORIDE
  90. EFFEXOR [Concomitant]
     Active Substance: VENLAFAXINE HYDROCHLORIDE
  91. AUGMENTIN [Concomitant]
     Active Substance: AMOXICILLIN\CLAVULANATE POTASSIUM
  92. DEXTROSE. [Concomitant]
     Active Substance: DEXTROSE
  93. NARCAN [Concomitant]
     Active Substance: NALOXONE HYDROCHLORIDE

REACTIONS (2)
  - Renal failure [Unknown]
  - Chronic kidney disease [Not Recovered/Not Resolved]

NARRATIVE: CASE EVENT DATE: 20180115
